FAERS Safety Report 4680892-1 (Version None)
Quarter: 2005Q2

REPORT INFORMATION
  Report Type: 
  Country: None (occurrence: None)
  Receive Date: 20050603
  Receipt Date: 20050526
  Transmission Date: 20051028
  Serious: Yes (Hospitalization)
  Sender: FDA-Public Use
  Company Number: PHHO2005JP08518

PATIENT
  Sex: Male

DRUGS (4)
  1. SIGMART [Concomitant]
     Indication: ANGINA PECTORIS
     Dosage: 2 DF, UNK
     Route: 048
     Dates: start: 20030602, end: 20040510
  2. HERBESSOR R [Concomitant]
     Indication: ANGINA PECTORIS
     Dosage: 2 DF, UNK
     Route: 048
     Dates: start: 20030602, end: 20040510
  3. MEVALOTIN [Concomitant]
     Dosage: 1 DF, UNK
     Route: 048
     Dates: start: 20030602, end: 20040510
  4. DIOVAN [Suspect]
     Indication: HYPERTENSION
     Dosage: 80 MG, QD
     Route: 048
     Dates: start: 20030602, end: 20040510

REACTIONS (1)
  - SPINAL FRACTURE [None]
